FAERS Safety Report 7907158-8 (Version None)
Quarter: 2011Q4

REPORT INFORMATION
  Report Type: 
  Country: None (occurrence: None)
  Receive Date: 20111110
  Receipt Date: 20111103
  Transmission Date: 20120403
  Serious: Yes (Death, Other)
  Sender: FDA-Public Use
  Company Number: ES-CELGENEUS-144-50794-11110306

PATIENT

DRUGS (2)
  1. VIDAZA [Suspect]
     Indication: ACUTE MYELOID LEUKAEMIA
     Route: 065
  2. VIDAZA [Suspect]
     Indication: MYELODYSPLASTIC SYNDROME

REACTIONS (13)
  - MYELODYSPLASTIC SYNDROME [None]
  - GENERAL PHYSICAL HEALTH DETERIORATION [None]
  - SEPTIC SHOCK [None]
  - VOMITING [None]
  - DEATH [None]
  - PANCYTOPENIA [None]
  - INFECTION [None]
  - ASTHENIA [None]
  - ACUTE MYELOID LEUKAEMIA [None]
  - DIARRHOEA [None]
  - INJECTION SITE REACTION [None]
  - DRUG INTOLERANCE [None]
  - NO THERAPEUTIC RESPONSE [None]
